FAERS Safety Report 10635318 (Version 1)
Quarter: 2014Q4

REPORT INFORMATION
  Report Type: Spontaneous
  Country: US (occurrence: US)
  Receive Date: 20141205
  Receipt Date: 20141205
  Transmission Date: 20150529
  Serious: No
  Sender: FDA-Public Use
  Company Number: US-BIOMARINAP-US-2014-102535

PATIENT
  Age: 28 Year
  Sex: Female

DRUGS (1)
  1. KUVAN [Suspect]
     Active Substance: SAPROPTERIN DIHYDROCHLORIDE
     Indication: AMINO ACID LEVEL ABNORMAL
     Dosage: 900 MG, QD
     Route: 048
     Dates: start: 20140127

REACTIONS (2)
  - White blood cell count increased [Unknown]
  - Renal pain [Unknown]
